FAERS Safety Report 16287899 (Version 4)
Quarter: 2019Q2

REPORT INFORMATION
  Report Type: Report from Study
  Country: KR (occurrence: KR)
  Receive Date: 20190508
  Receipt Date: 20190625
  Transmission Date: 20190711
  Serious: Yes (Other)
  Sender: FDA-Public Use
  Company Number: KR-ROCHE-2313132

PATIENT
  Age: 56 Year
  Sex: Male
  Weight: 76.6 kg

DRUGS (5)
  1. CHLORPHENIRAMINE [CHLORPHENAMINE] [Concomitant]
     Active Substance: CHLORPHENIRAMINE
     Indication: PRURITUS
     Route: 042
     Dates: start: 20161222
  2. CARBOPLATIN. [Suspect]
     Active Substance: CARBOPLATIN
     Indication: TRANSITIONAL CELL CARCINOMA
     Dosage: CARBOPLATIN WILL BE ADMINISTERED AT DOSES TO ACHIEVE AREA UNDER THE CONCENTRATION-TIME CURVE (AUC) O
     Route: 042
     Dates: start: 20161010
  3. FEBUXOSTAT. [Concomitant]
     Active Substance: FEBUXOSTAT
     Indication: ACUTE KIDNEY INJURY
     Route: 048
     Dates: start: 20180725
  4. ATEZOLIZUMAB. [Suspect]
     Active Substance: ATEZOLIZUMAB
     Indication: TRANSITIONAL CELL CARCINOMA
     Dosage: THE DATE OF MOST RECENT DOSE PRIOR TO EVENT ONSET: 11/APR/2019.
     Route: 042
     Dates: start: 20161010
  5. GEMCITABINE [Suspect]
     Active Substance: GEMCITABINE\GEMCITABINE HYDROCHLORIDE
     Indication: TRANSITIONAL CELL CARCINOMA
     Dosage: THE DATE OF MOST RECENT DOSE (850MG/M2) PRIOR TO EVENT ONSET: 02/MAR/2017
     Route: 042
     Dates: start: 20161010

REACTIONS (1)
  - Arrhythmia [Recovered/Resolved]

NARRATIVE: CASE EVENT DATE: 20190420
